FAERS Safety Report 14152885 (Version 2)
Quarter: 2017Q4

REPORT INFORMATION
  Report Type: Spontaneous
  Country: DE (occurrence: DE)
  Receive Date: 20171102
  Receipt Date: 20171120
  Transmission Date: 20180321
  Serious: Yes (Other)
  Sender: FDA-Public Use
  Company Number: DE-MYLANLABS-2017M1068169

PATIENT
  Age: 60 Year
  Sex: Female
  Weight: 78 kg

DRUGS (6)
  1. ALLERGODIL-FILMTABLETTEN [Suspect]
     Active Substance: AZELASTINE
     Indication: MITE ALLERGY
     Dosage: 3 DF, QD
     Route: 048
     Dates: start: 2013
  2. NOVOTHYRAL [Concomitant]
     Active Substance: LEVOTHYROXINE SODIUM\LIOTHYRONINE SODIUM
     Indication: AUTOIMMUNE THYROIDITIS
     Dosage: UNK UNK, QD
     Route: 048
     Dates: start: 201307
  3. NOVOTHYRAL [Concomitant]
     Active Substance: LEVOTHYROXINE SODIUM\LIOTHYRONINE SODIUM
     Indication: HYPOTHYROIDISM
  4. ALLERGODIL-FILMTABLETTEN [Suspect]
     Active Substance: AZELASTINE
     Indication: SEASONAL ALLERGY
  5. CYMBALTA [Concomitant]
     Active Substance: DULOXETINE HYDROCHLORIDE
     Indication: DEPRESSION
     Dosage: 0.5 TO 1 DF
     Route: 048
     Dates: start: 201410
  6. MICARDIS PLUS [Concomitant]
     Active Substance: HYDROCHLOROTHIAZIDE\TELMISARTAN
     Indication: HYPERTONIA
     Dosage: 1 DF, UNK
     Route: 048
     Dates: start: 201304

REACTIONS (5)
  - Headache [Recovered/Resolved]
  - Oedema mucosal [Recovered/Resolved]
  - Drug effect decreased [Recovered/Resolved]
  - Product quality issue [Unknown]
  - Hypersensitivity [Recovered/Resolved]

NARRATIVE: CASE EVENT DATE: 201708
